FAERS Safety Report 16034999 (Version 1)
Quarter: 2019Q1

REPORT INFORMATION
  Report Type: Spontaneous
  Country: US (occurrence: US)
  Receive Date: 20190305
  Receipt Date: 20190305
  Transmission Date: 20190418
  Serious: No
  Sender: FDA-Public Use
  Company Number: US-MYLANLABS-2019M1015189

PATIENT

DRUGS (1)
  1. PROCTOFOAM HC [Suspect]
     Active Substance: HYDROCORTISONE ACETATE\PRAMOXINE HYDROCHLORIDE
     Indication: HAEMORRHOIDS
     Dosage: ONE APPLICATION AT NIGHT, AEROSAL, QD
     Route: 054
     Dates: start: 20190207

REACTIONS (2)
  - Underdose [Unknown]
  - Product leakage [Unknown]

NARRATIVE: CASE EVENT DATE: 20190209
